FAERS Safety Report 5381304-5 (Version None)
Quarter: 2007Q3

REPORT INFORMATION
  Report Type: 
  Country: None (occurrence: None)
  Receive Date: 20070703
  Receipt Date: 20070518
  Transmission Date: 20080115
  Serious: Yes (Other)
  Sender: FDA-Public Use
  Company Number: 37289

PATIENT
  Sex: Male

DRUGS (1)
  1. OCTREOTIDE ACETATE [Suspect]

REACTIONS (1)
  - DRUG INEFFECTIVE [None]
